FAERS Safety Report 6844780-4 (Version None)
Quarter: 2010Q3

REPORT INFORMATION
  Report Type: 
  Country: None (occurrence: None)
  Receive Date: 20100715
  Receipt Date: 20100707
  Transmission Date: 20110219
  Serious: Yes (Hospitalization)
  Sender: FDA-Public Use
  Company Number: IT-WYE-H16052410

PATIENT
  Sex: Female

DRUGS (2)
  1. PANTOPAN [Suspect]
     Indication: GASTRITIS
     Route: 048
     Dates: start: 20100621, end: 20100627
  2. LAMICTAL [Concomitant]
     Dosage: UNKNOWN

REACTIONS (2)
  - ERYTHEMA [None]
  - SUFFOCATION FEELING [None]
